FAERS Safety Report 18746483 (Version 1)
Quarter: 2021Q1

REPORT INFORMATION
  Report Type: Report from Study
  Country: ES (occurrence: ES)
  Receive Date: 20210115
  Receipt Date: 20210115
  Transmission Date: 20210419
  Serious: Yes (Other)
  Sender: FDA-Public Use
  Company Number: ES-TEVA-2021-ES-1869785

PATIENT
  Age: 73 Year
  Sex: Female

DRUGS (10)
  1. CORTIC ?  CORTICOIDE [Concomitant]
     Route: 042
     Dates: start: 20200326, end: 20200328
  2. LINEZOLID (1279A) [Concomitant]
     Active Substance: LINEZOLID
  3. CEFTRIAXONA (501A) [Concomitant]
     Active Substance: CEFTRIAXONE
  4. ERTAPENEM (2881A) [Concomitant]
     Active Substance: ERTAPENEM
  5. HIDROXICLOROQUINA (2143A) [Concomitant]
     Active Substance: HYDROXYCHLOROQUINE
     Indication: COVID-19
     Dosage: 400MG / 12 DAY 1; THEN 200MG / 12
     Route: 048
     Dates: start: 20200326, end: 20200330
  6. MEROPENEM (7155A) [Concomitant]
     Active Substance: MEROPENEM
  7. LOPINAVIR + RITONAVIR [Concomitant]
     Active Substance: LOPINAVIR\RITONAVIR
     Indication: COVID-19
     Dosage: 1DOSAGEFORM
     Route: 048
     Dates: start: 20200326, end: 20200406
  8. CLARITROMICINA (967A) [Suspect]
     Active Substance: CLARITHROMYCIN
     Route: 065
     Dates: start: 20200328, end: 20200402
  9. TOCILIZUMAB (8289A) [Concomitant]
     Active Substance: TOCILIZUMAB
     Indication: COVID-19
     Dosage: 400MILLIGRAM
     Route: 042
     Dates: start: 20200328, end: 20200328
  10. AZITROMICINA (7019A) [Concomitant]
     Active Substance: AZITHROMYCIN
     Dates: start: 20200328, end: 20200328

REACTIONS (1)
  - Long QT syndrome [Recovered/Resolved]

NARRATIVE: CASE EVENT DATE: 20200402
